FAERS Safety Report 8103401-3 (Version None)
Quarter: 2012Q1

REPORT INFORMATION
  Report Type: 
  Country: None (occurrence: None)
  Receive Date: 20120201
  Receipt Date: 20120123
  Transmission Date: 20120608
  Serious: Yes (Hospitalization)
  Sender: FDA-Public Use
  Company Number: US-ROCHE-1025972

PATIENT
  Sex: Male
  Weight: 113.6 kg

DRUGS (16)
  1. TARCEVA [Suspect]
     Indication: HEPATIC NEOPLASM MALIGNANT
     Route: 048
     Dates: start: 20111206, end: 20111213
  2. LORATADINE [Concomitant]
  3. TESSALON [Concomitant]
  4. CIPROFLOXACIN [Concomitant]
  5. ATARAX [Concomitant]
  6. OXYCODONE HCL [Concomitant]
  7. HYDROCHLOROTHIAZIDE [Concomitant]
  8. DILTIAZEM HCL [Concomitant]
  9. COREG [Concomitant]
  10. DIGOXIN [Concomitant]
  11. CARDURA [Concomitant]
  12. POTASSIUM CHLORIDE [Concomitant]
  13. ZOCOR [Concomitant]
  14. AVASTIN [Suspect]
     Indication: HEPATIC NEOPLASM MALIGNANT
     Route: 042
     Dates: start: 20111206
  15. FERROUS SULFATE TAB [Concomitant]
  16. METFORMIN HCL [Concomitant]

REACTIONS (1)
  - HEART RATE INCREASED [None]
